FAERS Safety Report 8505685-6 (Version None)
Quarter: 2012Q3

REPORT INFORMATION
  Report Type: 
  Country: None (occurrence: None)
  Receive Date: 20120712
  Receipt Date: 20120705
  Transmission Date: 20120928
  Serious: Yes (Death)
  Sender: FDA-Public Use
  Company Number: US-CELGENEUS-163-21880-12070764

PATIENT
  Sex: Female

DRUGS (11)
  1. CATAPRES [Concomitant]
     Route: 065
  2. VITAMIN D [Concomitant]
     Route: 065
  3. POTASSIUM CHLORIDE [Concomitant]
     Route: 065
  4. NORVASC [Concomitant]
     Route: 065
  5. METRONIDAZOLE [Concomitant]
     Route: 065
  6. REVLIMID [Suspect]
     Indication: MULTIPLE MYELOMA
     Dosage: 3.75 MILLIGRAM
     Route: 048
     Dates: start: 20120508
  7. SYNTHROID [Concomitant]
     Route: 065
  8. LASIX [Concomitant]
     Route: 065
  9. COLACE [Concomitant]
     Route: 065
  10. ASPIRIN [Concomitant]
     Dosage: 81 MILLIGRAM
     Route: 065
  11. HYDROXYZINE [Concomitant]
     Route: 065

REACTIONS (1)
  - DEATH [None]
